FAERS Safety Report 10785773 (Version 1)
Quarter: 2015Q1

REPORT INFORMATION
  Report Type: Spontaneous
  Country: RU (occurrence: RU)
  Receive Date: 20150211
  Receipt Date: 20150211
  Transmission Date: 20150721
  Serious: Yes (Other)
  Sender: FDA-Public Use
  Company Number: RU-BAYER-2015-016706

PATIENT
  Age: 37 Year
  Sex: Female

DRUGS (1)
  1. YAZ [Suspect]
     Active Substance: DROSPIRENONE\ETHINYL ESTRADIOL
     Indication: CYST
     Dosage: UNK
     Route: 048
     Dates: start: 20150116

REACTIONS (5)
  - Headache [None]
  - Pancreatitis [None]
  - Product use issue [None]
  - Nausea [None]
  - Malaise [None]
